FAERS Safety Report 13204046 (Version 7)
Quarter: 2017Q4

REPORT INFORMATION
  Report Type: Report from Study
  Country: None (occurrence: BE)
  Receive Date: 20170209
  Receipt Date: 20171101
  Transmission Date: 20180320
  Serious: Yes (Other)
  Sender: FDA-Public Use
  Company Number: BE-ABBVIE-17K-013-1861907-00

PATIENT
  Age: 63 Year
  Sex: Female

DRUGS (1)
  1. HUMIRA [Suspect]
     Active Substance: ADALIMUMAB
     Indication: PRODUCT USED FOR UNKNOWN INDICATION
     Route: 058

REACTIONS (15)
  - Discomfort [Unknown]
  - Poor quality sleep [Unknown]
  - Injection site pain [Unknown]
  - Arthropathy [Unknown]
  - Cyst [Unknown]
  - Pain in extremity [Unknown]
  - Ligament sprain [Unknown]
  - Pain in extremity [Unknown]
  - Back pain [Unknown]
  - Wrong technique in product usage process [Unknown]
  - Post procedural complication [Unknown]
  - Carpal tunnel syndrome [Not Recovered/Not Resolved]
  - Therapeutic response shortened [Unknown]
  - Musculoskeletal pain [Unknown]
  - Tendonitis [Unknown]

NARRATIVE: CASE EVENT DATE: 2017
